FAERS Safety Report 8173658-1 (Version None)
Quarter: 2012Q1

REPORT INFORMATION
  Report Type: 
  Country: None (occurrence: None)
  Receive Date: 20120224
  Receipt Date: 20120217
  Transmission Date: 20120608
  Serious: Yes (Disabling, Other)
  Sender: FDA-Public Use
  Company Number: 2012MA002199

PATIENT
  Age: 59 Year
  Sex: Female
  Weight: 73.4827 kg

DRUGS (16)
  1. PLAVIX [Concomitant]
  2. ASPIRIN [Concomitant]
  3. PRISTIQ [Suspect]
     Dosage: 25 MG, TID, PO
     Route: 048
     Dates: start: 20110101
  4. SIMVASTATIN [Concomitant]
  5. DESIPRAMINE HYDROCHLORIDE [Suspect]
     Indication: DEPRESSION
     Dosage: 25 MG, TID, PO
     Route: 048
     Dates: start: 20120101, end: 20120101
  6. ZOLOFT [Suspect]
  7. REGLAN [Concomitant]
  8. NEXIUM [Concomitant]
  9. LISINOPRIL [Concomitant]
  10. METFORMIN HCL [Concomitant]
  11. WELLBUTRIN [Suspect]
  12. DILTIAZEM HCL [Concomitant]
  13. METOPROLOL SUCCINATE [Concomitant]
  14. NITROGLYCERIN [Concomitant]
  15. PROZAC [Concomitant]
  16. AMITRIPTYLINE HCL [Suspect]
     Dates: start: 20110101

REACTIONS (7)
  - FEELINGS OF WORTHLESSNESS [None]
  - VOMITING [None]
  - MIDDLE INSOMNIA [None]
  - DRUG INEFFECTIVE [None]
  - DECREASED APPETITE [None]
  - CRYING [None]
  - TREATMENT NONCOMPLIANCE [None]
